FAERS Safety Report 7301587-1 (Version None)
Quarter: 2011Q1

REPORT INFORMATION
  Report Type: 
  Country: None (occurrence: None)
  Receive Date: 20110218
  Receipt Date: 20110209
  Transmission Date: 20110831
  Serious: Yes (Other)
  Sender: FDA-Public Use
  Company Number: GB-NAPPMUNDI-GBR-2011-0007733

PATIENT
  Age: 73 Year
  Sex: Female

DRUGS (1)
  1. MS CONTIN [Suspect]
     Indication: SUICIDE ATTEMPT
     Dosage: 250 MG, SINGLE
     Route: 048
     Dates: start: 20110208, end: 20110208

REACTIONS (2)
  - EXPIRED DRUG ADMINISTERED [None]
  - SUICIDE ATTEMPT [None]
